FAERS Safety Report 7677842-2 (Version None)
Quarter: 2011Q3

REPORT INFORMATION
  Report Type: 
  Country: None (occurrence: None)
  Receive Date: 20110811
  Receipt Date: 20110808
  Transmission Date: 20111222
  Serious: Yes (Other)
  Sender: FDA-Public Use
  Company Number: US-BAYER-2010-007449

PATIENT
  Age: 31 Year
  Sex: Female
  Weight: 68 kg

DRUGS (1)
  1. MIRENA [Suspect]
     Indication: CONTRACEPTION
     Dosage: 20 ?G/D, CONT
     Dates: start: 20090801

REACTIONS (13)
  - BREAST TENDERNESS [None]
  - AMENORRHOEA [None]
  - BACK PAIN [None]
  - VAGINAL DISCHARGE [None]
  - PROCEDURAL PAIN [None]
  - PELVIC PAIN [None]
  - IRRITABILITY [None]
  - CERVIX CARCINOMA [None]
  - SMEAR CERVIX ABNORMAL [None]
  - ERYTHEMA [None]
  - MENORRHAGIA [None]
  - VAGINAL HAEMORRHAGE [None]
  - VAGINAL ODOUR [None]
